FAERS Safety Report 9971301 (Version 1)
Quarter: 2014Q1

REPORT INFORMATION
  Report Type: Report from Study
  Country: US (occurrence: US)
  Receive Date: 20140306
  Receipt Date: 20140306
  Transmission Date: 20141002
  Serious: No
  Sender: FDA-Public Use
  Company Number: US-ABBVIE-13P-163-1147915-00

PATIENT
  Age: 48 Year
  Sex: Female

DRUGS (16)
  1. HUMIRA [Suspect]
     Indication: PSORIASIS
     Dates: start: 20121121
  2. CYMBALTA [Concomitant]
     Indication: DEPRESSION
  3. CYMBALTA [Concomitant]
     Indication: ANXIETY
  4. BUSPAR [Concomitant]
     Indication: DEPRESSION
  5. BUSPAR [Concomitant]
     Indication: ANXIETY
  6. GABAPENTIN [Concomitant]
     Indication: DEPRESSION
  7. GABAPENTIN [Concomitant]
     Indication: ANXIETY
  8. CLONAZEPAM [Concomitant]
     Indication: DEPRESSION
  9. CLONAZEPAM [Concomitant]
     Indication: ANXIETY
  10. SYNTHROID [Concomitant]
     Indication: HYPOTHYROIDISM
  11. METFORMIN ER [Concomitant]
     Indication: DIABETES MELLITUS
  12. JANUVIA [Concomitant]
     Indication: DIABETES MELLITUS
  13. ZANTAC [Concomitant]
     Indication: PRODUCT USED FOR UNKNOWN INDICATION
  14. CETIRIZINE [Concomitant]
     Indication: HYPERSENSITIVITY
     Dates: end: 201307
  15. IMITREX [Concomitant]
     Indication: MIGRAINE
  16. FLU SHOT [Concomitant]
     Indication: PRODUCT USED FOR UNKNOWN INDICATION
     Dates: start: 201210

REACTIONS (4)
  - Injection site extravasation [Not Recovered/Not Resolved]
  - Incorrect dose administered [Not Recovered/Not Resolved]
  - Wrong technique in drug usage process [Not Recovered/Not Resolved]
  - Injection site pain [Not Recovered/Not Resolved]
